FAERS Safety Report 5765272-X (Version None)
Quarter: 2008Q2

REPORT INFORMATION
  Report Type: 
  Country: None (occurrence: None)
  Receive Date: 20080609
  Receipt Date: 20080609
  Transmission Date: 20081010
  Serious: Yes (Other)
  Sender: FDA-Public Use
  Company Number: None

PATIENT
  Age: 33 Year
  Sex: Female
  Weight: 67.586 kg

DRUGS (1)
  1. KENALOG [Suspect]
     Indication: URTICARIA
     Dosage: ONE SHOT SQ
     Route: 058
     Dates: start: 20071224, end: 20071224

REACTIONS (2)
  - INJECTION SITE DISCOLOURATION [None]
  - LIPOATROPHY [None]
